FAERS Safety Report 10868174 (Version 1)
Quarter: 2015Q1

REPORT INFORMATION
  Report Type: Spontaneous
  Country: SK (occurrence: SK)
  Receive Date: 20150225
  Receipt Date: 20150225
  Transmission Date: 20150721
  Serious: Yes (Other)
  Sender: FDA-Public Use
  Company Number: SK-GLAXOSMITHKLINE-SK2015GSK020844

PATIENT
  Age: 65 Year
  Sex: Female

DRUGS (5)
  1. TYVERB [Suspect]
     Active Substance: LAPATINIB
     Indication: BREAST CANCER METASTATIC
     Dosage: 1250 MG, UNK
     Route: 048
     Dates: start: 201310, end: 201311
  2. CAPECITABINE. [Suspect]
     Active Substance: CAPECITABINE
     Indication: BREAST CANCER METASTATIC
     Dosage: 2000 MG/M2, UNK
     Dates: start: 201310, end: 201311
  3. CAPECITABINE. [Suspect]
     Active Substance: CAPECITABINE
     Dosage: UNK
     Dates: start: 201312
  4. NADROPARINE [Concomitant]
     Active Substance: NADROPARIN
     Indication: EMBOLISM
     Dosage: UNK
     Dates: start: 201311
  5. TYVERB [Suspect]
     Active Substance: LAPATINIB
     Dosage: 1000 MG, UNK
     Route: 048
     Dates: start: 201312

REACTIONS (8)
  - Diarrhoea [Unknown]
  - Vertigo [Unknown]
  - Anaemia [Unknown]
  - Asthenia [Recovered/Resolved]
  - Aortic embolus [Unknown]
  - Herpes zoster [Recovered/Resolved]
  - Weight decreased [Unknown]
  - Gait disturbance [Unknown]

NARRATIVE: CASE EVENT DATE: 201310
